FAERS Safety Report 20080608 (Version 2)
Quarter: 2022Q1

REPORT INFORMATION
  Report Type: Spontaneous
  Country: US (occurrence: US)
  Receive Date: 20211117
  Receipt Date: 20220121
  Transmission Date: 20220424
  Serious: No
  Sender: FDA-Public Use
  Company Number: US-ALNYLAM PHARMACEUTICALS, INC.-ALN-2021-002926

PATIENT

DRUGS (1)
  1. GIVLAARI [Suspect]
     Active Substance: GIVOSIRAN SODIUM
     Indication: Product used for unknown indication
     Route: 065

REACTIONS (5)
  - Blood homocysteine increased [Unknown]
  - Unevaluable event [Not Recovered/Not Resolved]
  - Porphyria acute [Unknown]
  - Weight decreased [Unknown]
  - Inappropriate schedule of product administration [Unknown]
